FAERS Safety Report 6314427-4 (Version None)
Quarter: 2009Q3

REPORT INFORMATION
  Report Type: 
  Country: None (occurrence: None)
  Receive Date: 20090813
  Receipt Date: 20090813
  Transmission Date: 20100115
  Serious: Yes (Hospitalization)
  Sender: FDA-Public Use
  Company Number: None

PATIENT
  Age: 29 Year
  Sex: Female
  Weight: 51 kg

DRUGS (4)
  1. PERGOVERIS (FIXED COMBINATION OF R-HFSH AND R-HLH) [Suspect]
     Dosage: 150 IU, SUBCUTANEOUS
     Route: 058
     Dates: start: 20090302, end: 20090316
  2. OVITRELLE (CHORIOGONADOTROPIN ALFA) [Suspect]
     Dosage: SUBCUTANEOUS
     Route: 058
     Dates: end: 20090316
  3. CLOMID [Suspect]
  4. PROGESTERONE [Concomitant]

REACTIONS (5)
  - ABORTION SPONTANEOUS [None]
  - DRUG EXPOSURE DURING PREGNANCY [None]
  - HETEROTOPIC PREGNANCY [None]
  - OVARIAN HYPERSTIMULATION SYNDROME [None]
  - RUPTURED ECTOPIC PREGNANCY [None]
